FAERS Safety Report 9336680 (Version 1)
Quarter: 2013Q2

REPORT INFORMATION
  Report Type: Spontaneous
  Country: GB (occurrence: GB)
  Receive Date: 20130607
  Receipt Date: 20130607
  Transmission Date: 20140414
  Serious: Yes (Death)
  Sender: FDA-Public Use
  Company Number: PHHY2013GB057228

PATIENT
  Age: 4 Year
  Sex: Male

DRUGS (3)
  1. VALPROIC ACID [Suspect]
     Indication: CONVULSION
     Dosage: UNK UKN, UNK
  2. CARBAMAZEPINE [Suspect]
     Indication: CONVULSION
     Dosage: UNK UKN, UNK
  3. PHENYTOIN [Suspect]
     Indication: CONVULSION
     Dosage: UNK UKN, UNK

REACTIONS (4)
  - Metastases to meninges [Fatal]
  - Melanomatous meningitis [Fatal]
  - Central nervous system lesion [Fatal]
  - Convulsion [Unknown]
